FAERS Safety Report 6329737-4 (Version None)
Quarter: 2009Q3

REPORT INFORMATION
  Report Type: 
  Country: None (occurrence: None)
  Receive Date: 20090826
  Receipt Date: 20090804
  Transmission Date: 20100115
  Serious: Yes (Hospitalization)
  Sender: FDA-Public Use
  Company Number: FR-PFIZER INC-2009249790

PATIENT
  Age: 67 Year

DRUGS (5)
  1. SOLU-MEDROL [Suspect]
     Indication: ALLERGY PROPHYLAXIS
     Dosage: 80 MG, SINGLE
     Route: 042
     Dates: start: 20090722, end: 20090722
  2. MABTHERA [Suspect]
     Indication: NON-HODGKIN'S LYMPHOMA
     Dosage: 596 MG IN THEORY BUT ONLY A FEW MG RECEIVED
     Route: 042
     Dates: start: 20090722, end: 20090722
  3. POLARAMINE [Suspect]
     Indication: ALLERGY PROPHYLAXIS
     Dosage: 5 MG, SINGLE
     Route: 042
     Dates: start: 20090722, end: 20090722
  4. ONDANSETRON [Suspect]
     Indication: PROPHYLAXIS OF NAUSEA AND VOMITING
     Dosage: 8 MG, SINGLE
     Route: 042
     Dates: start: 20090722, end: 20090722
  5. ACETAMINOPHEN [Suspect]
     Indication: PAIN PROPHYLAXIS
     Dosage: 1 G, SINGLE
     Route: 042
     Dates: start: 20090722, end: 20090722

REACTIONS (2)
  - HYPOTENSION [None]
  - MALAISE [None]
